FAERS Safety Report 7124308-4 (Version None)
Quarter: 2010Q4

REPORT INFORMATION
  Report Type: 
  Country: None (occurrence: None)
  Receive Date: 20101126
  Receipt Date: 20101116
  Transmission Date: 20110411
  Serious: Yes (Hospitalization, Other)
  Sender: FDA-Public Use
  Company Number: PHHY2010US77938

PATIENT
  Sex: Male

DRUGS (1)
  1. EXJADE [Suspect]
     Indication: HAEMOCHROMATOSIS
     Dosage: 2125 MG, QD
     Route: 048
     Dates: start: 20101025, end: 20101026

REACTIONS (2)
  - ACUTE MYELOID LEUKAEMIA [None]
  - RED BLOOD CELL COUNT DECREASED [None]
